FAERS Safety Report 24693091 (Version 1)
Quarter: 2024Q4

REPORT INFORMATION
  Report Type: Spontaneous
  Country: JP (occurrence: JP)
  Receive Date: 20241203
  Receipt Date: 20241203
  Transmission Date: 20250115
  Serious: Yes (Other)
  Sender: LUNDBECK
  Company Number: JP-LUNDBECK-DKLU4007476

PATIENT

DRUGS (2)
  1. DROXIDOPA [Suspect]
     Active Substance: DROXIDOPA
     Indication: Parkinson^s disease
     Route: 048
  2. DROXIDOPA [Suspect]
     Active Substance: DROXIDOPA
     Dosage: 400 MILLIGRAM
     Route: 048

REACTIONS (1)
  - Facial paralysis [Unknown]
